FAERS Safety Report 9702284 (Version 1)
Quarter: 2013Q4

REPORT INFORMATION
  Report Type: Report from Study
  Country: MX (occurrence: MX)
  Receive Date: 20131121
  Receipt Date: 20131121
  Transmission Date: 20140711
  Serious: Yes (Other)
  Sender: FDA-Public Use
  Company Number: PHHY2013MX128440

PATIENT
  Age: 68 Year
  Sex: Female

DRUGS (6)
  1. ONBREZ [Suspect]
     Indication: LUNG DISORDER
     Dosage: 1 DF, QD
     Dates: start: 201310
  2. ONBREZ [Suspect]
     Indication: OFF LABEL USE
  3. OMEPRAZOLE [Concomitant]
     Indication: COLITIS
     Dosage: 1 DF, QD
     Dates: start: 1983
  4. OMEPRAZOLE [Concomitant]
     Indication: GASTRITIS
  5. EXFORGE [Concomitant]
     Indication: HYPERTENSION
     Dosage: 0.5 DF DAILY
     Route: 048
     Dates: start: 20131007
  6. IPRATROPIUM BROMIDE [Concomitant]
     Indication: LUNG DISORDER
     Dosage: 2 DF, DAILY
     Dates: start: 201310

REACTIONS (1)
  - Blood pressure increased [Unknown]
